FAERS Safety Report 10638656 (Version 1)
Quarter: 2014Q4

REPORT INFORMATION
  Report Type: Spontaneous
  Country: US (occurrence: None)
  Receive Date: 20141121
  Receipt Date: 20141121
  Transmission Date: 20150529
  Serious: No
  Sender: FDA-Public Use
  Company Number: 163-10004-14090822

PATIENT
  Age: 68 Year
  Sex: Male
  Weight: 86.18 kg

DRUGS (4)
  1. DOXYCYCLINE. [Concomitant]
     Active Substance: DOXYCYCLINE
  2. OTEZLA [Suspect]
     Active Substance: APREMILAST
     Indication: PSORIATIC ARTHROPATHY
     Dosage: 60 MG,  2 IN 1 D, PO
     Route: 048
     Dates: start: 201408
  3. SULFASALAZINE (SULFASALAZINE) [Concomitant]
     Active Substance: SULFASALAZINE
  4. ALEVE (NAPROXEN SODIUM) [Concomitant]

REACTIONS (3)
  - Gastrointestinal disorder [None]
  - Headache [None]
  - Weight decreased [None]
